FAERS Safety Report 7197728-X (Version None)
Quarter: 2010Q4

REPORT INFORMATION
  Report Type: 
  Country: None (occurrence: None)
  Receive Date: 20101213
  Receipt Date: 20101202
  Transmission Date: 20110411
  Serious: Yes (Hospitalization)
  Sender: FDA-Public Use
  Company Number: 2010US004694

PATIENT
  Age: 50 Year
  Sex: Female

DRUGS (3)
  1. PROTOPIC [Suspect]
     Indication: DERMATITIS ATOPIC
     Dosage: 0.03 %, BID, TOPICAL, 0.03%, BID, TOPICAL, 0.03%, BID, TOPICAL
     Route: 061
  2. PROTOPIC [Suspect]
  3. PROTOPIC [Suspect]

REACTIONS (5)
  - GASTROINTESTINAL DISORDER [None]
  - HERNIA [None]
  - PERITONEAL LESION [None]
  - PNEUMONIA [None]
  - PNEUMOTHORAX [None]
